FAERS Safety Report 4324781-0 (Version None)
Quarter: 2004Q1

REPORT INFORMATION
  Report Type: 
  Country: None (occurrence: None)
  Receive Date: 20040326
  Receipt Date: 20040319
  Transmission Date: 20041129
  Serious: Yes (Death)
  Sender: FDA-Public Use
  Company Number: US-GLAXOSMITHKLINE-A0504024A

PATIENT
  Age: 59 Year
  Sex: Male

DRUGS (9)
  1. PAXIL [Suspect]
     Indication: DRUG USE FOR UNKNOWN INDICATION
     Route: 048
  2. TEMAZEPAM [Concomitant]
     Route: 048
  3. DILANTIN [Concomitant]
     Route: 048
  4. PHENOBARBITAL TAB [Concomitant]
  5. IMDUR [Concomitant]
     Route: 048
  6. CATAPRES [Concomitant]
     Route: 048
  7. PROZAC [Concomitant]
     Route: 048
  8. RITALIN [Concomitant]
     Route: 048
  9. ZYPREXA [Concomitant]
     Route: 048

REACTIONS (2)
  - CHEST INJURY [None]
  - GUN SHOT WOUND [None]
